FAERS Safety Report 15887362 (Version 2)
Quarter: 2019Q1

REPORT INFORMATION
  Report Type: Spontaneous
  Country: PL (occurrence: PL)
  Receive Date: 20190130
  Receipt Date: 20190130
  Transmission Date: 20190417
  Serious: Yes (Other)
  Sender: FDA-Public Use
  Company Number: PL-EMD SERONO-9067228

PATIENT
  Age: 42 Year
  Sex: Female
  Weight: 63 kg

DRUGS (2)
  1. REBIF [Suspect]
     Active Substance: INTERFERON BETA-1A
     Indication: MULTIPLE SCLEROSIS
     Dosage: TITRATION FOR 4 WEEKS
     Route: 058
     Dates: start: 20181120
  2. REBIF [Suspect]
     Active Substance: INTERFERON BETA-1A
     Dosage: FULL DOSE
     Route: 058
     Dates: start: 201812, end: 20190108

REACTIONS (3)
  - Duodenal ulcer [Unknown]
  - Myalgia [Unknown]
  - Pyrexia [Unknown]

NARRATIVE: CASE EVENT DATE: 201901
